FAERS Safety Report 21907340 (Version 1)
Quarter: 2023Q1

REPORT INFORMATION
  Report Type: Spontaneous
  Country: US (occurrence: None)
  Receive Date: 20230124
  Receipt Date: 20230124
  Transmission Date: 20230418
  Serious: No
  Sender: FDA-Public Use
  Company Number: None

PATIENT
  Age: 65 Year
  Sex: Male
  Weight: 165 kg

DRUGS (1)
  1. PANTOPRAZOLE SODIUM [Suspect]
     Active Substance: PANTOPRAZOLE SODIUM
     Dosage: FREQUENCY : DAILY;?
     Route: 042
     Dates: start: 20220112, end: 20220117

REACTIONS (1)
  - Hyperammonaemia [None]

NARRATIVE: CASE EVENT DATE: 20220119
